FAERS Safety Report 8554171-6 (Version None)
Quarter: 2012Q3

REPORT INFORMATION
  Report Type: 
  Country: None (occurrence: None)
  Receive Date: 20120731
  Receipt Date: 20120702
  Transmission Date: 20120928
  Serious: No
  Sender: FDA-Public Use
  Company Number: US-009507513-1207USA000357

PATIENT

DRUGS (1)
  1. SINGULAIR [Suspect]
     Dosage: 10 MG, QPM
     Route: 048

REACTIONS (2)
  - UNDERDOSE [None]
  - PRODUCT PHYSICAL ISSUE [None]
